FAERS Safety Report 9965307 (Version 1)
Quarter: 2014Q1

REPORT INFORMATION
  Report Type: Report from Study
  Country: US (occurrence: US)
  Receive Date: 20140305
  Receipt Date: 20140305
  Transmission Date: 20141002
  Serious: No
  Sender: FDA-Public Use
  Company Number: US-ABBVIE-13P-163-1125199-00

PATIENT
  Age: 40 Year
  Sex: Female
  Weight: 58.57 kg

DRUGS (5)
  1. HUMIRA [Suspect]
     Indication: CROHN^S DISEASE
     Dates: start: 201209, end: 201209
  2. HUMIRA [Suspect]
     Dates: start: 201209, end: 201209
  3. HUMIRA [Suspect]
     Dates: start: 201210
  4. OMEPRAZOLE [Concomitant]
     Indication: GASTROOESOPHAGEAL REFLUX DISEASE
  5. DICYCLOMINE [Concomitant]
     Indication: CROHN^S DISEASE

REACTIONS (1)
  - Panic attack [Recovered/Resolved]
